FAERS Safety Report 13636795 (Version 1)
Quarter: 2017Q2

REPORT INFORMATION
  Report Type: Report from Study
  Country: EC (occurrence: EC)
  Receive Date: 20170609
  Receipt Date: 20170609
  Transmission Date: 20170830
  Serious: Yes (Hospitalization)
  Sender: FDA-Public Use
  Company Number: EC-ROCHE-1934977

PATIENT
  Sex: Female

DRUGS (1)
  1. AVASTIN [Suspect]
     Active Substance: BEVACIZUMAB
     Indication: OVARIAN CANCER
     Dosage: SINGLE DOSE
     Route: 042
     Dates: start: 20170508

REACTIONS (7)
  - Gastrointestinal disorder [Recovering/Resolving]
  - Disease progression [Not Recovered/Not Resolved]
  - Performance status decreased [Recovering/Resolving]
  - Drug ineffective [Unknown]
  - Chest pain [Not Recovered/Not Resolved]
  - Abdominal pain upper [Not Recovered/Not Resolved]
  - Headache [Not Recovered/Not Resolved]
